FAERS Safety Report 8914800 (Version 2)
Quarter: 2012Q4

REPORT INFORMATION
  Report Type: 
  Country: JP (occurrence: JP)
  Receive Date: 20121119
  Receipt Date: 20121123
  Transmission Date: 20130627
  Serious: Yes (Hospitalization)
  Sender: FDA-Public Use
  Company Number: PHHY2012JP104979

PATIENT
  Sex: Female
  Weight: 35 kg

DRUGS (4)
  1. ETHAMBUTOL [Suspect]
     Dosage: 750 mg, daily dose
     Route: 048
     Dates: start: 2011, end: 2011
  2. ISONIAZID [Suspect]
     Indication: PERITONEAL TUBERCULOSIS
     Dosage: 300 mg, daily dose
     Route: 048
     Dates: start: 2011, end: 2011
  3. RIFAMPICIN [Suspect]
     Indication: PERITONEAL TUBERCULOSIS
     Dosage: 450 mg, daily dose
     Route: 048
     Dates: start: 2011, end: 2011
  4. LEVOFLOXACIN [Concomitant]
     Dosage: 500 mg, UNK

REACTIONS (8)
  - Ascites [Recovered/Resolved]
  - Hypertrophy [Recovered/Resolved]
  - Acid fast bacilli infection [Recovered/Resolved]
  - Drug-induced liver injury [Recovered/Resolved]
  - Vomiting [Recovered/Resolved]
  - Jaundice [Recovered/Resolved]
  - Pyrexia [Recovered/Resolved]
  - Abdominal pain lower [Recovered/Resolved]
